FAERS Safety Report 8870428 (Version 1)
Quarter: 2012Q4

REPORT INFORMATION
  Report Type: 
  Country: US (occurrence: US)
  Receive Date: 20121026
  Receipt Date: 20121026
  Transmission Date: 20130627
  Serious: No
  Sender: FDA-Public Use
  Company Number: US-AMGEN-USASP2012043654

PATIENT
  Sex: Female
  Weight: 95.2 kg

DRUGS (8)
  1. ENBREL [Suspect]
     Indication: PRODUCT USED FOR UNKNOWN INDICATION
     Dosage: 50 mg/ml, qwk
     Route: 058
  2. MELOXICAM [Concomitant]
     Dosage: 7.5 mg, UNK
  3. METHOTREXATE [Concomitant]
     Dosage: 2.5 mg, UNK
  4. ZITHROMAX [Concomitant]
     Dosage: 250 mg, UNK
  5. METOPROLOL [Concomitant]
     Dosage: 50 mg, UNK
  6. AMITRIPTYLIN [Concomitant]
     Dosage: 10 mg, UNK
  7. PREVACID [Concomitant]
     Dosage: 15 mg, UNK
  8. ESTRADIOL [Concomitant]
     Dosage: 0.5 mg, UNK

REACTIONS (1)
  - Sinusitis [Unknown]
